FAERS Safety Report 9368951 (Version 1)
Quarter: 2013Q2

REPORT INFORMATION
  Report Type: Spontaneous
  Country: GB (occurrence: None)
  Receive Date: 20130621
  Receipt Date: 20130621
  Transmission Date: 20140414
  Serious: Yes (Hospitalization)
  Sender: FDA-Public Use
  Company Number: 2013-001906

PATIENT
  Age: 83 Year
  Sex: Female

DRUGS (1)
  1. ACTONEL [Suspect]
     Indication: OSTEOPOROSIS
     Dosage: 35MG ONCE WEEKLY, ORAL
     Route: 048
     Dates: end: 2005

REACTIONS (3)
  - Atypical femur fracture [None]
  - Fall [None]
  - Vitamin D deficiency [None]
